FAERS Safety Report 8181834 (Version 5)
Quarter: 2014Q1

REPORT INFORMATION
  Report Type: Report from Study
  Country: FR (occurrence: FR)
  Receive Date: 20111014
  Receipt Date: 20140128
  Transmission Date: 20141002
  Serious: Yes (Hospitalization, Other)
  Sender: FDA-Public Use
  Company Number: FR-ACTELION-A-CH2011-51110

PATIENT
  Age: 11 Year
  Sex: Female
  Weight: 27 kg

DRUGS (11)
  1. ZAVESCA [Suspect]
     Indication: NIEMANN-PICK DISEASE
     Dosage: 200 MG, BID
     Route: 048
     Dates: start: 20100608, end: 20110702
  2. ZAVESCA [Suspect]
     Dosage: UNK
     Route: 048
     Dates: start: 20110713
  3. LAMICTAL [Suspect]
     Dosage: UNK
     Dates: end: 20110701
  4. LAMICTAL [Suspect]
     Dosage: UNK
     Dates: start: 201108, end: 201109
  5. LAMICTAL [Suspect]
     Dosage: UNK
  6. DEPAKINE [Suspect]
     Dosage: UNK
     Dates: end: 20110701
  7. DEPAKINE [Suspect]
     Dosage: UNK
     Dates: start: 201108, end: 201109
  8. ARTANE [Concomitant]
     Dosage: UNK
     Dates: end: 20110701
  9. KANEURON [Concomitant]
  10. KEPPRA [Concomitant]
  11. ANAFRANIL [Concomitant]

REACTIONS (7)
  - Coagulation factor decreased [Recovered/Resolved]
  - Concomitant disease aggravated [Recovered/Resolved]
  - Ear haemorrhage [Unknown]
  - Epistaxis [Recovered/Resolved]
  - Thrombocytopenia [Not Recovered/Not Resolved]
  - Platelet count decreased [Not Recovered/Not Resolved]
  - Liver function test abnormal [Recovering/Resolving]
